FAERS Safety Report 24029424 (Version 3)
Quarter: 2025Q2

REPORT INFORMATION
  Report Type: Spontaneous
  Country: US (occurrence: US)
  Receive Date: 20240628
  Receipt Date: 20250623
  Transmission Date: 20250716
  Serious: No
  Sender: SANOFI AVENTIS
  Company Number: US-SA-SAC20240620000213

PATIENT
  Age: 28 Year
  Sex: Male
  Weight: 95.25 kg

DRUGS (9)
  1. DUPIXENT [Suspect]
     Active Substance: DUPILUMAB
     Indication: Dermatitis atopic
     Dosage: 300MG, QOW
     Route: 058
     Dates: start: 202309
  2. DERMAREST PSORIASIS [Concomitant]
  3. FOCALIN XR [Concomitant]
     Active Substance: DEXMETHYLPHENIDATE HYDROCHLORIDE
  4. MUPIROCIN [Concomitant]
     Active Substance: MUPIROCIN
  5. MELATONIN [Concomitant]
     Active Substance: MELATONIN
  6. DERMAPHOR [Concomitant]
     Active Substance: PETROLATUM
  7. TRIAMCINOLONE ACETONIDE [Concomitant]
     Active Substance: TRIAMCINOLONE ACETONIDE
  8. VITAMINS [Concomitant]
     Active Substance: VITAMINS
  9. AQUAPHOR (XIPAMIDE) [Concomitant]
     Active Substance: XIPAMIDE

REACTIONS (3)
  - Weight decreased [Not Recovered/Not Resolved]
  - Dermal cyst [Unknown]
  - Staphylococcal infection [Unknown]

NARRATIVE: CASE EVENT DATE: 20250105
